FAERS Safety Report 16174615 (Version 1)
Quarter: 2019Q2

REPORT INFORMATION
  Report Type: Spontaneous
  Country: SE (occurrence: SE)
  Receive Date: 20190409
  Receipt Date: 20190409
  Transmission Date: 20190711
  Serious: Yes (Other)
  Sender: FDA-Public Use
  Company Number: SE-GLAXOSMITHKLINE-SE2019062702

PATIENT
  Age: 67 Year
  Sex: Female

DRUGS (1)
  1. NUCALA [Suspect]
     Active Substance: MEPOLIZUMAB
     Indication: ASTHMA
     Dosage: HAS IN TOTAL RECEIVED 4 DOSES
     Route: 058
     Dates: start: 20181204, end: 20190228

REACTIONS (2)
  - Joint swelling [Unknown]
  - Pyrexia [Unknown]

NARRATIVE: CASE EVENT DATE: 20190104
